FAERS Safety Report 11699671 (Version 1)
Quarter: 2015Q4

REPORT INFORMATION
  Report Type: Spontaneous
  Country: CA (occurrence: CA)
  Receive Date: 20151105
  Receipt Date: 20151105
  Transmission Date: 20160304
  Serious: Yes (Death, Hospitalization)
  Sender: FDA-Public Use
  Company Number: CA-ROCHE-1655900

PATIENT
  Age: 38 Year
  Sex: Male

DRUGS (4)
  1. PEGASYS [Suspect]
     Active Substance: PEGINTERFERON ALFA-2A
     Indication: CHRONIC HEPATITIS C
     Route: 058
  2. IBAVYR [Suspect]
     Active Substance: RIBAVIRIN
     Indication: CHRONIC HEPATITIS C
     Dosage: THERAPY DURATION: 53 DAYS
     Route: 065
  3. NADOLOL. [Concomitant]
     Active Substance: NADOLOL
     Route: 065
  4. SOVALDI [Suspect]
     Active Substance: SOFOSBUVIR
     Indication: CHRONIC HEPATITIS C
     Dosage: THERAPY DURATION: 53 DAYS
     Route: 065

REACTIONS (3)
  - Coma [Fatal]
  - Septic shock [Fatal]
  - Cardiac arrest [Fatal]
